FAERS Safety Report 19451127 (Version 1)
Quarter: 2021Q2

REPORT INFORMATION
  Report Type: Spontaneous
  Country: US (occurrence: US)
  Receive Date: 20210623
  Receipt Date: 20210623
  Transmission Date: 20210717
  Serious: No
  Sender: FDA-Public Use
  Company Number: US-SA-2021SA204858

PATIENT
  Age: 2 Year
  Sex: Male

DRUGS (6)
  1. DUPIXENT [Suspect]
     Active Substance: DUPILUMAB
     Indication: DERMATITIS ATOPIC
     Route: 058
     Dates: start: 20210504
  2. INFANTS^ MOTRIN [Concomitant]
  3. TYLENOL [Concomitant]
     Active Substance: ACETAMINOPHEN
  4. KEFLEX [Concomitant]
     Active Substance: CEPHALEXIN
  5. DERMA SMOOTH FS [Concomitant]
  6. ZYRTEC [Concomitant]
     Active Substance: CETIRIZINE HYDROCHLORIDE

REACTIONS (4)
  - Restlessness [Unknown]
  - Product use issue [Unknown]
  - Scratch [Unknown]
  - Pruritus [Unknown]

NARRATIVE: CASE EVENT DATE: 20210504
